FAERS Safety Report 10791728 (Version 1)
Quarter: 2015Q1

REPORT INFORMATION
  Report Type: Spontaneous
  Country: GB (occurrence: US)
  Receive Date: 20150213
  Receipt Date: 20150213
  Transmission Date: 20150721
  Serious: Yes (Hospitalization)
  Sender: FDA-Public Use
  Company Number: GB-CIPLA LTD.-2015US01142

PATIENT

DRUGS (3)
  1. CHLORPHENIRAMINE [Suspect]
     Active Substance: CHLORPHENIRAMINE
     Dosage: 56 MG
  2. CITALOPRAM [Suspect]
     Active Substance: CITALOPRAM HYDROBROMIDE
     Dosage: 220 MG
  3. LAMOTRIGINE. [Suspect]
     Active Substance: LAMOTRIGINE
     Indication: EPILEPSY
     Dosage: 9.2 G

REACTIONS (10)
  - Metabolic acidosis [Unknown]
  - Depressed level of consciousness [Unknown]
  - Sinus tachycardia [Unknown]
  - Electrocardiogram QT interval [Unknown]
  - Tremor [Unknown]
  - Intentional overdose [Unknown]
  - Agitation [Unknown]
  - Vomiting [Unknown]
  - Nystagmus [Unknown]
  - QRS axis abnormal [Unknown]
